FAERS Safety Report 10707466 (Version 1)
Quarter: 2015Q1

REPORT INFORMATION
  Report Type: Spontaneous
  Country: US (occurrence: None)
  Receive Date: 20150112
  Receipt Date: 20150112
  Transmission Date: 20150721
  Serious: Yes (Death, Hospitalization)
  Sender: FDA-Public Use
  Company Number: None

PATIENT
  Age: 2 Year
  Sex: Male
  Weight: 13.7 kg

DRUGS (3)
  1. DEXAMETHASONE. [Suspect]
     Active Substance: DEXAMETHASONE
     Dates: end: 20141214
  2. DAUNORUBICIN [Suspect]
     Active Substance: DAUNORUBICIN
     Dates: end: 20141215
  3. ONCASPAR [Suspect]
     Active Substance: PEGASPARGASE
     Dates: end: 20141204

REACTIONS (12)
  - Pleural effusion [None]
  - Skin discolouration [None]
  - Respiratory distress [None]
  - Pneumonia necrotising [None]
  - Mental status changes [None]
  - Arterial occlusive disease [None]
  - Infection [None]
  - Meningitis fungal [None]
  - Bronchial obstruction [None]
  - Stomatitis [None]
  - Pneumothorax [None]
  - Haemorrhage [None]

NARRATIVE: CASE EVENT DATE: 20141222
